FAERS Safety Report 25044462 (Version 1)
Quarter: 2025Q1

REPORT INFORMATION
  Report Type: Spontaneous
  Country: JP (occurrence: JP)
  Receive Date: 20250306
  Receipt Date: 20250306
  Transmission Date: 20250409
  Serious: Yes (Other)
  Sender: AMGEN
  Company Number: JP-AMGEN-JPNSP2025029799

PATIENT
  Age: 77 Year
  Sex: Female
  Weight: 36 kg

DRUGS (14)
  1. EVENITY [Suspect]
     Active Substance: ROMOSOZUMAB-AQQG
     Indication: Osteoporosis
     Route: 058
     Dates: start: 20241106, end: 20241204
  2. AMLODIPINE [Concomitant]
     Active Substance: AMLODIPINE BESYLATE
  3. AZILSARTAN KAMEDOXOMIL [Concomitant]
     Active Substance: AZILSARTAN KAMEDOXOMIL
  4. CALONAL [Concomitant]
     Active Substance: ACETAMINOPHEN
  5. Miyabm [Concomitant]
  6. MAGNESIUM OXIDE [Concomitant]
     Active Substance: MAGNESIUM OXIDE
  7. LEVOTHYROXINE [Concomitant]
     Active Substance: LEVOTHYROXINE
  8. VIBEGRON [Concomitant]
     Active Substance: VIBEGRON
  9. Diart [Concomitant]
  10. ALFACALCIDOL [Concomitant]
     Active Substance: ALFACALCIDOL
     Dates: start: 20240817
  11. VOLTAREN [Concomitant]
     Active Substance: DICLOFENAC SODIUM
  12. LOXOPROFEN SODIUM [Concomitant]
     Active Substance: LOXOPROFEN SODIUM
  13. ZINC ACETATE [Concomitant]
     Active Substance: ZINC ACETATE
  14. NAUZELIN [Concomitant]
     Active Substance: DOMPERIDONE

REACTIONS (2)
  - Gait disturbance [Not Recovered/Not Resolved]
  - Rehabilitation therapy [Unknown]

NARRATIVE: CASE EVENT DATE: 20241109
